FAERS Safety Report 13168902 (Version 2)
Quarter: 2017Q1

REPORT INFORMATION
  Report Type: Spontaneous
  Country: US (occurrence: US)
  Receive Date: 20170131
  Receipt Date: 20170203
  Transmission Date: 20170428
  Serious: Yes (Other)
  Sender: FDA-Public Use
  Company Number: US-PFIZER INC-2017036750

PATIENT
  Age: 56 Year
  Sex: Female

DRUGS (1)
  1. LYRICA [Suspect]
     Active Substance: PREGABALIN
     Dosage: 100 MG, UNK
     Dates: end: 20170121

REACTIONS (5)
  - Abdominal pain upper [Unknown]
  - Nausea [Unknown]
  - Malaise [Unknown]
  - Headache [Unknown]
  - Drug detoxification [Unknown]

NARRATIVE: CASE EVENT DATE: 2017
